FAERS Safety Report 7885110-9 (Version None)
Quarter: 2011Q4

REPORT INFORMATION
  Report Type: 
  Country: None (occurrence: None)
  Receive Date: 20111102
  Receipt Date: 20110921
  Transmission Date: 20120403
  Serious: Yes (Death)
  Sender: FDA-Public Use
  Company Number: US-ROCHE-1008638

PATIENT
  Sex: Male

DRUGS (5)
  1. ACTIVASE [Suspect]
     Indication: ISCHAEMIC STROKE
  2. PLAVIX [Concomitant]
  3. NOVOLOG [Concomitant]
  4. NOVOLIN 70/30 [Concomitant]
  5. PANTOPRAZOLE [Concomitant]

REACTIONS (1)
  - VENTRICULAR FIBRILLATION [None]
